FAERS Safety Report 4747535-X (Version None)
Quarter: 2005Q3

REPORT INFORMATION
  Report Type: 
  Country: None (occurrence: None)
  Receive Date: 20050816
  Receipt Date: 20050804
  Transmission Date: 20060218
  Serious: Yes (Hospitalization)
  Sender: FDA-Public Use
  Company Number: HQWYE359821JUL05

PATIENT
  Age: 48 Year
  Sex: Female

DRUGS (4)
  1. MINOCYCLINE HCL [Suspect]
     Indication: PNEUMONIA
     Dosage: ORAL
     Route: 048
     Dates: start: 20041214, end: 20041220
  2. FLOMOX (CEFCAPENE PIVOXIL HYDROCHLORIDE) [Suspect]
     Indication: PNEUMONIA
     Dosage: ORAL
     Route: 048
     Dates: start: 20041214, end: 20041220
  3. MINOCIN [Suspect]
     Indication: PNEUMONIA
     Dosage: INTRAVENOUS DRIP
     Route: 041
     Dates: start: 20041207, end: 20041214
  4. PIPERACILLIN SODIUM [Concomitant]

REACTIONS (4)
  - ENANTHEMA [None]
  - EPIDERMAL NECROSIS [None]
  - PYREXIA [None]
  - RASH [None]
